FAERS Safety Report 4831627-0 (Version None)
Quarter: 2005Q4

REPORT INFORMATION
  Report Type: 
  Country: None (occurrence: None)
  Receive Date: 20051116
  Receipt Date: 20051104
  Transmission Date: 20060501
  Serious: Yes (Hospitalization)
  Sender: FDA-Public Use
  Company Number: 2005147363

PATIENT
  Age: 29 Year
  Sex: Female

DRUGS (4)
  1. XANAX [Suspect]
     Indication: DRUG TOXICITY
     Dosage: ORAL
     Route: 048
  2. EFFEXOR [Suspect]
     Indication: DRUG TOXICITY
     Dosage: ORAL
     Route: 048
  3. ALIMEMAZINE TARTRATE (ALIMEMAZINE TARTRATE) [Concomitant]
  4. PARACETAMOL (PARACETAMOL) [Concomitant]

REACTIONS (6)
  - BLOOD HUMAN CHORIONIC GONADOTROPIN ABNORMAL [None]
  - DELIRIUM [None]
  - HALLUCINATION [None]
  - HYPOAESTHESIA [None]
  - OVERDOSE [None]
  - TACHYCARDIA [None]
